FAERS Safety Report 25238174 (Version 2)
Quarter: 2025Q2

REPORT INFORMATION
  Report Type: Spontaneous
  Country: JP (occurrence: JP)
  Receive Date: 20250425
  Receipt Date: 20250529
  Transmission Date: 20250716
  Serious: Yes (Death, Hospitalization, Other)
  Sender: MERCK SHARP & DOHME LLC
  Company Number: JP-009507513-2278243

PATIENT
  Age: 61 Year
  Sex: Female

DRUGS (1)
  1. KEYTRUDA [Suspect]
     Active Substance: PEMBROLIZUMAB
     Indication: Lung squamous cell carcinoma stage IV
     Dosage: 200 MG ONCE EVERY 3 WEEKS; 1 COURSE
     Route: 042
     Dates: start: 20250325, end: 2025

REACTIONS (5)
  - Malignant neoplasm progression [Fatal]
  - Cardiac tamponade [Unknown]
  - Immune-mediated pericarditis [Unknown]
  - Troponin increased [Unknown]
  - Immune-mediated myocarditis [Unknown]

NARRATIVE: CASE EVENT DATE: 20250415
